FAERS Safety Report 5170282-X (Version None)
Quarter: 2006Q4

REPORT INFORMATION
  Report Type: 
  Country: None (occurrence: None)
  Receive Date: 20061204
  Receipt Date: 20061110
  Transmission Date: 20070319
  Serious: Yes (Hospitalization)
  Sender: FDA-Public Use
  Company Number: CLOF-10247

PATIENT
  Age: 13 Year
  Sex: Female

DRUGS (1)
  1. CLOFARABINE [Suspect]
     Indication: ACUTE LYMPHOCYTIC LEUKAEMIA
     Dosage: 52 MG/M2 QD X 5 IV
     Route: 042
     Dates: start: 20060206

REACTIONS (4)
  - FEBRILE NEUTROPENIA [None]
  - HAEMOGLOBIN DECREASED [None]
  - SOFT TISSUE NECROSIS [None]
  - VAGINAL LESION [None]
